FAERS Safety Report 21453526 (Version 2)
Quarter: 2022Q4

REPORT INFORMATION
  Report Type: Spontaneous
  Country: PT (occurrence: PT)
  Receive Date: 20221013
  Receipt Date: 20221221
  Transmission Date: 20230113
  Serious: Yes (Other)
  Sender: FDA-Public Use
  Company Number: PT-009507513-2209PRT011269

PATIENT
  Sex: Female

DRUGS (3)
  1. AXITINIB [Suspect]
     Active Substance: AXITINIB
     Indication: Renal cell carcinoma
     Dosage: UNK
  2. AXITINIB [Suspect]
     Active Substance: AXITINIB
     Dosage: 3 MG
  3. PEMBROLIZUMAB [Suspect]
     Active Substance: PEMBROLIZUMAB
     Indication: Renal cell carcinoma
     Dosage: UNK

REACTIONS (3)
  - Hepatotoxicity [Recovered/Resolved]
  - Disease recurrence [Unknown]
  - Therapy partial responder [Unknown]
